FAERS Safety Report 18487269 (Version 5)
Quarter: 2020Q4

REPORT INFORMATION
  Report Type: Report from Study
  Country: US (occurrence: US)
  Receive Date: 20201110
  Receipt Date: 20201225
  Transmission Date: 20210114
  Serious: Yes (Other)
  Sender: FDA-Public Use
  Company Number: NVSC2020US296892

PATIENT
  Age: 65 Year
  Sex: Female

DRUGS (2)
  1. PIQRAY [Suspect]
     Active Substance: ALPELISIB
     Indication: PRODUCT USED FOR UNKNOWN INDICATION
     Dosage: UNK
     Route: 048
  2. PIQRAY [Suspect]
     Active Substance: ALPELISIB
     Route: 048

REACTIONS (13)
  - Dyspnoea [Unknown]
  - Pain [Unknown]
  - Disease progression [Unknown]
  - Suspected COVID-19 [Unknown]
  - Malaise [Unknown]
  - Headache [Unknown]
  - Metastases to central nervous system [Unknown]
  - Wheezing [Unknown]
  - Stomatitis [Unknown]
  - Chest discomfort [Recovered/Resolved]
  - Breast cancer stage IV [Unknown]
  - Cough [Recovered/Resolved]
  - Renal pain [Unknown]

NARRATIVE: CASE EVENT DATE: 20201109
